FAERS Safety Report 25893896 (Version 4)
Quarter: 2025Q4

REPORT INFORMATION
  Report Type: Spontaneous
  Country: US (occurrence: US)
  Receive Date: 20251008
  Receipt Date: 20251029
  Transmission Date: 20260118
  Serious: No
  Sender: SYNDAX
  Company Number: US-SYNDAX PHARMACEUTICALS, INC.-2025US000785

PATIENT
  Age: 63 Year
  Sex: Male
  Weight: 92.971 kg

DRUGS (13)
  1. REVUFORJ [Suspect]
     Active Substance: REVUMENIB CITRATE
     Indication: Acute myeloid leukaemia
     Dosage: 110 MILLIGRAM, BID
     Route: 048
     Dates: start: 20250926
  2. REVUFORJ [Suspect]
     Active Substance: REVUMENIB CITRATE
     Dosage: 160 MILLIGRAM, BID
     Route: 048
     Dates: start: 20250926
  3. AMLODIPINE [Concomitant]
     Active Substance: AMLODIPINE BESYLATE
     Indication: Product used for unknown indication
     Route: 065
  4. CALCIUM CARBONATE\VITAMIN D [Concomitant]
     Active Substance: CALCIUM CARBONATE\VITAMIN D
     Indication: Product used for unknown indication
     Route: 065
  5. CYCLOBENZAPRINE [Concomitant]
     Active Substance: CYCLOBENZAPRINE
     Indication: Product used for unknown indication
     Route: 065
  6. DICLOFENAC [Concomitant]
     Active Substance: DICLOFENAC
     Indication: Product used for unknown indication
     Route: 065
  7. EFUDEX [Concomitant]
     Active Substance: FLUOROURACIL
     Indication: Product used for unknown indication
     Route: 065
  8. METOPROLOL SUCCINATE [Concomitant]
     Active Substance: METOPROLOL SUCCINATE
     Indication: Product used for unknown indication
     Route: 065
  9. MUCINEX DM [Concomitant]
     Active Substance: DEXTROMETHORPHAN HYDROBROMIDE\GUAIFENESIN
     Indication: Product used for unknown indication
     Route: 065
  10. VIAGRA [Concomitant]
     Active Substance: SILDENAFIL CITRATE
     Indication: Product used for unknown indication
     Route: 065
  11. VICKS DAYQUIL                      /00761701/ [Concomitant]
     Indication: Product used for unknown indication
     Route: 065
  12. CALCIUM MAGNESIUM                  /00591201/ [Concomitant]
     Indication: Product used for unknown indication
     Route: 065
  13. MAGNESIUM W/ZINC [Concomitant]
     Indication: Product used for unknown indication
     Route: 065

REACTIONS (6)
  - Nasopharyngitis [Recovering/Resolving]
  - Faeces hard [Not Recovered/Not Resolved]
  - Nausea [Recovering/Resolving]
  - Peripheral swelling [Recovered/Resolved]
  - Neoplasm progression [Unknown]
  - Drug ineffective [Unknown]

NARRATIVE: CASE EVENT DATE: 20250928
